FAERS Safety Report 9785321 (Version 3)
Quarter: 2014Q2

REPORT INFORMATION
  Report Type: Spontaneous
  Country: US (occurrence: None)
  Receive Date: 20131224
  Receipt Date: 20140506
  Transmission Date: 20141212
  Serious: Yes (Hospitalization)
  Sender: FDA-Public Use
  Company Number: 2013US002879

PATIENT
  Age: 84 Year
  Sex: Female
  Weight: 55 kg

DRUGS (11)
  1. PONATINIB (AP24534) TABLET [Suspect]
     Indication: CHRONIC MYELOID LEUKAEMIA
     Route: 048
     Dates: start: 20110630, end: 20130925
  2. OMEPRAZOLE (OMEPRAZOLE) [Concomitant]
  3. LISINOPRIL (LISINOPRIL) [Concomitant]
  4. LIPITOR (ATORVASTATIN CALCIUM) [Concomitant]
  5. DOXAZOSIN (DOXAZOSIN) [Concomitant]
  6. HYDROCHLOROTHIAZIDE (HYDROCHLOROTHIAZIDE) [Concomitant]
  7. LIDOCAINE (LIDOCAINE HYDROCHLORIDE) [Concomitant]
  8. VERSED (MIDAZOLAM HYDROCHLORIDE) [Concomitant]
  9. MIRALAX (MACROGOL) [Concomitant]
  10. NIFEDIPINE (NIFEDIPINE) (NIFEDIPINE) [Concomitant]
  11. PLAVIX (CLOPIDOGREL BISULFATE) (CLOPIDOGREL BISULFATE) [Concomitant]

REACTIONS (1)
  - Fall [None]
